FAERS Safety Report 9556372 (Version 1)
Quarter: 2013Q3

REPORT INFORMATION
  Report Type: Spontaneous
  Country: US (occurrence: None)
  Receive Date: 20130906
  Receipt Date: 20130906
  Transmission Date: 20140515
  Serious: Yes (Other)
  Sender: FDA-Public Use
  Company Number: 163-POMAL-13062012

PATIENT
  Age: 70 Year
  Sex: Male

DRUGS (3)
  1. POMALYST [Suspect]
     Indication: PLASMA CELL MYELOMA
     Dosage: 4 MG/ML, 21 IN 28 D, PO
     Route: 048
     Dates: start: 20130530
  2. ASPIRINE (ACETYLSALICYLIC ACID) [Concomitant]
  3. HYDROXYZINE [Concomitant]

REACTIONS (1)
  - Joint swelling [None]
